FAERS Safety Report 23404384 (Version 2)
Quarter: 2024Q1

REPORT INFORMATION
  Report Type: Report from Study
  Country: US (occurrence: US)
  Receive Date: 20240116
  Receipt Date: 20240311
  Transmission Date: 20240410
  Serious: Yes (Hospitalization)
  Sender: FDA-Public Use
  Company Number: US-TEVA-2023-US-2848565

PATIENT
  Age: 79 Year
  Sex: Female

DRUGS (1)
  1. AUSTEDO [Suspect]
     Active Substance: DEUTETRABENAZINE
     Indication: Tardive dyskinesia
     Dosage: DURATION: 171 DAYS
     Route: 065
     Dates: start: 20200814, end: 20210201

REACTIONS (5)
  - Hospitalisation [Unknown]
  - Living in residential institution [Unknown]
  - Hypoacusis [Unknown]
  - Insomnia [Unknown]
  - Hospice care [Unknown]

NARRATIVE: CASE EVENT DATE: 20230101
